FAERS Safety Report 9661683 (Version 1)
Quarter: 2013Q4

REPORT INFORMATION
  Report Type: Spontaneous
  Country: FR (occurrence: FR)
  Receive Date: 20131031
  Receipt Date: 20131031
  Transmission Date: 20140711
  Serious: Yes (Hospitalization)
  Sender: FDA-Public Use
  Company Number: FR-ASTRAZENECA-2013SE79226

PATIENT
  Age: 58 Year
  Sex: Male

DRUGS (11)
  1. INEXIUM [Suspect]
     Dosage: DAILY
     Route: 048
     Dates: end: 20130930
  2. CELLCEPT [Suspect]
     Dates: start: 20130927
  3. ZIVOXID [Suspect]
     Dates: start: 20130919, end: 20130929
  4. CYMEVAN [Suspect]
     Dates: start: 20130927
  5. TAZOCILLINE [Concomitant]
     Dates: start: 20130906, end: 20130918
  6. TIENAM [Concomitant]
     Dates: start: 20130918, end: 20130919
  7. MEROPENEM [Concomitant]
     Dates: start: 20130919
  8. CANCIDAS [Concomitant]
     Dates: start: 20130919
  9. VANCOMYCIN [Concomitant]
     Dates: start: 20130929
  10. SOLUMEDROL [Concomitant]
     Dates: start: 20130927
  11. BARACLUDE [Concomitant]
     Dates: start: 20130927

REACTIONS (2)
  - Ascites [Unknown]
  - Thrombocytopenia [Unknown]
